FAERS Safety Report 9565492 (Version 1)
Quarter: 2013Q3

REPORT INFORMATION
  Report Type: Spontaneous
  Country: FR (occurrence: FR)
  Receive Date: 20130930
  Receipt Date: 20130930
  Transmission Date: 20140515
  Serious: Yes (Hospitalization)
  Sender: FDA-Public Use
  Company Number: FR-TEVA-433934ISR

PATIENT
  Age: 64 Year
  Sex: Female

DRUGS (4)
  1. ROPINIROLE [Suspect]
     Indication: RESTLESS LEGS SYNDROME
     Dosage: 3MG DAILY
     Route: 065
  2. FLUOXETINE [Suspect]
     Indication: MAJOR DEPRESSION
     Route: 065
  3. BUPROPION [Suspect]
     Indication: MAJOR DEPRESSION
     Route: 065
  4. TRAMADOL [Concomitant]
     Indication: RESTLESS LEGS SYNDROME
     Dosage: 100MG
     Route: 065

REACTIONS (5)
  - Major depression [Recovered/Resolved]
  - Restless legs syndrome [Unknown]
  - Impulse-control disorder [Unknown]
  - Withdrawal syndrome [Recovered/Resolved]
  - Weight increased [Unknown]
